FAERS Safety Report 10206561 (Version 1)
Quarter: 2014Q2

REPORT INFORMATION
  Report Type: Spontaneous
  Country: US (occurrence: US)
  Receive Date: 20140530
  Receipt Date: 20140530
  Transmission Date: 20141212
  Serious: No
  Sender: FDA-Public Use
  Company Number: US-GLAXOSMITHKLINE-A1036205A

PATIENT
  Age: 32 Year
  Sex: Female
  Weight: 59.1 kg

DRUGS (12)
  1. FLOLAN [Suspect]
     Indication: COR PULMONALE CHRONIC
     Dosage: 14NGKM CONTINUOUS
     Route: 042
     Dates: start: 20130709
  2. ADCIRCA [Suspect]
     Indication: PRODUCT USED FOR UNKNOWN INDICATION
     Dosage: 1TAB PER DAY
     Route: 065
  3. FUROSEMIDE [Concomitant]
  4. MIDODRINE [Concomitant]
  5. VALTREX [Concomitant]
  6. SINGULAIR [Concomitant]
  7. IMODIUM [Concomitant]
  8. FLONASE [Concomitant]
  9. NEXIUM [Concomitant]
  10. CELEXA [Concomitant]
  11. SYMBICORT [Concomitant]
  12. PROVENTIL [Concomitant]

REACTIONS (9)
  - Pruritus [Recovered/Resolved]
  - Rash [Recovered/Resolved]
  - Sinusitis [Recovered/Resolved]
  - Hot flush [Recovered/Resolved]
  - Dizziness [Recovering/Resolving]
  - Headache [Unknown]
  - Device malfunction [Unknown]
  - Device infusion issue [Unknown]
  - Chest discomfort [Unknown]
